FAERS Safety Report 6864977-7 (Version None)
Quarter: 2010Q3

REPORT INFORMATION
  Report Type: 
  Country: None (occurrence: None)
  Receive Date: 20100721
  Receipt Date: 20080407
  Transmission Date: 20110219
  Serious: No
  Sender: FDA-Public Use
  Company Number: US-PFIZER INC-2008031934

PATIENT
  Sex: Female
  Weight: 72.727 kg

DRUGS (2)
  1. CHANTIX [Suspect]
     Indication: SMOKING CESSATION THERAPY
     Dates: start: 20080301, end: 20080312
  2. CRESTOR [Concomitant]

REACTIONS (4)
  - DRUG INTOLERANCE [None]
  - EYELID DISORDER [None]
  - HYPERSENSITIVITY [None]
  - UNEVALUABLE EVENT [None]
